FAERS Safety Report 16822424 (Version 8)
Quarter: 2023Q2

REPORT INFORMATION
  Report Type: Spontaneous
  Country: US (occurrence: US)
  Receive Date: 20190918
  Receipt Date: 20230523
  Transmission Date: 20230722
  Serious: Yes (Other)
  Sender: FDA-Public Use
  Company Number: US-PFIZER INC-2019399645

PATIENT
  Age: 55 Year
  Sex: Female
  Weight: 90.72 kg

DRUGS (2)
  1. XELJANZ XR [Suspect]
     Active Substance: TOFACITINIB CITRATE
     Indication: Rheumatoid arthritis
     Dosage: 11 MG, 1X/DAY
     Route: 048
     Dates: start: 2019
  2. XELJANZ XR [Suspect]
     Active Substance: TOFACITINIB CITRATE
     Dosage: 11 MG

REACTIONS (16)
  - Pneumonia [Recovered/Resolved]
  - Pulmonary oedema [Unknown]
  - Rib fracture [Recovered/Resolved]
  - Road traffic accident [Unknown]
  - Drug dependence [Unknown]
  - Product dose omission issue [Unknown]
  - Bronchitis [Unknown]
  - Upper respiratory tract infection [Unknown]
  - Back pain [Unknown]
  - Neck pain [Unknown]
  - Muscle spasms [Unknown]
  - Dyspnoea [Recovered/Resolved]
  - Cough [Unknown]
  - Memory impairment [Unknown]
  - Pain [Unknown]
  - Gait disturbance [Unknown]

NARRATIVE: CASE EVENT DATE: 20200301
